FAERS Safety Report 4696486-8 (Version None)
Quarter: 2005Q2

REPORT INFORMATION
  Report Type: 
  Country: None (occurrence: None)
  Receive Date: 20050608
  Receipt Date: 20041101
  Transmission Date: 20051028
  Serious: Yes (Hospitalization)
  Sender: FDA-Public Use
  Company Number: A03200403667

PATIENT
  Age: 64 Year
  Sex: Female
  Weight: 46 kg

DRUGS (6)
  1. ELOXATIN [Suspect]
     Indication: METASTATIC NEOPLASM
     Dosage: 1000 MG/M2 Q2W - INTRAVENOUS NOS
     Route: 042
     Dates: start: 20041026, end: 20041026
  2. GEMZAR [Suspect]
     Indication: METASTATIC NEOPLASM
     Dosage: 1000 MG/M2 Q2W - INTRAVENOUS NOS
     Route: 042
     Dates: start: 20041027, end: 20041027
  3. MORPHINE SULFATE [Concomitant]
  4. PROCHLORPERAZINE EDISYLATE [Concomitant]
  5. ONDANSETRON HYDROCHLORIDE [Concomitant]
  6. APREPITANT [Concomitant]

REACTIONS (9)
  - ASCITES [None]
  - BLOOD AMYLASE INCREASED [None]
  - BLOOD CALCIUM DECREASED [None]
  - LIPASE INCREASED [None]
  - NAUSEA [None]
  - OEDEMA [None]
  - PANCREATIC PSEUDOCYST [None]
  - PANCREATITIS [None]
  - VOMITING [None]
